FAERS Safety Report 10164772 (Version 2)
Quarter: 2014Q2

REPORT INFORMATION
  Report Type: Spontaneous
  Country: US (occurrence: US)
  Receive Date: 20140510
  Receipt Date: 20140510
  Transmission Date: 20141212
  Serious: No
  Sender: FDA-Public Use
  Company Number: US-BRISTOL-MYERS SQUIBB COMPANY-19618354

PATIENT
  Age: 72 Year
  Sex: Female

DRUGS (5)
  1. BYDUREON [Suspect]
     Route: 058
  2. HUMALOG [Concomitant]
  3. JANUMET [Concomitant]
  4. STARLIX [Concomitant]
  5. GLUCOTROL [Concomitant]

REACTIONS (1)
  - Injection site nodule [Not Recovered/Not Resolved]
